FAERS Safety Report 18912490 (Version 1)
Quarter: 2021Q1

REPORT INFORMATION
  Report Type: Report from Study
  Country: US (occurrence: US)
  Receive Date: 20210219
  Receipt Date: 20210219
  Transmission Date: 20210420
  Serious: No
  Sender: FDA-Public Use
  Company Number: US-ACADIA PHARMACEUTICALS INC.-ACA-2021-PIM-000368

PATIENT
  Sex: Male

DRUGS (11)
  1. RIVASTIGMINE. [Concomitant]
     Active Substance: RIVASTIGMINE
  2. CELECOXIB. [Concomitant]
     Active Substance: CELECOXIB
  3. NUPLAZID [Suspect]
     Active Substance: PIMAVANSERIN TARTRATE
     Indication: PARKINSON^S DISEASE
     Dosage: 34 MILLIGRAM, QD
     Route: 048
  4. LANSOPRAZOLE. [Concomitant]
     Active Substance: LANSOPRAZOLE
  5. CLONIDINE. [Concomitant]
     Active Substance: CLONIDINE
  6. ENALAPRIL [Concomitant]
     Active Substance: ENALAPRIL
  7. TAMSULOSIN [Concomitant]
     Active Substance: TAMSULOSIN
  8. MEMANTINE. [Concomitant]
     Active Substance: MEMANTINE
  9. NIFEDIPINE. [Concomitant]
     Active Substance: NIFEDIPINE
  10. METOPROLOL. [Concomitant]
     Active Substance: METOPROLOL
  11. GABAPENTIN. [Concomitant]
     Active Substance: GABAPENTIN

REACTIONS (1)
  - Condition aggravated [Not Recovered/Not Resolved]
